FAERS Safety Report 7830900-1 (Version None)
Quarter: 2011Q4

REPORT INFORMATION
  Report Type: 
  Country: None (occurrence: None)
  Receive Date: 20111021
  Receipt Date: 20111017
  Transmission Date: 20120403
  Serious: No
  Sender: FDA-Public Use
  Company Number: US-PFIZER INC-2011249589

PATIENT

DRUGS (1)
  1. PRISTIQ [Suspect]
     Dosage: 50 MG

REACTIONS (2)
  - TINNITUS [None]
  - DIZZINESS [None]
